FAERS Safety Report 9275659 (Version 1)
Quarter: 2013Q2

REPORT INFORMATION
  Report Type: Spontaneous
  Country: IN (occurrence: None)
  Receive Date: 20130430
  Receipt Date: 20130430
  Transmission Date: 20140414
  Serious: Yes (Other)
  Sender: FDA-Public Use
  Company Number: AUR-APL-2013-03512

PATIENT
  Age: 7 Year
  Sex: Female

DRUGS (6)
  1. CLOPIDOGREL (CLOPIDOGREL) [Suspect]
     Indication: THROMBOSIS
     Route: 048
  2. METHOTREXATE SODIUM (METHOTREXATE SODIUM) [Suspect]
     Indication: MORPHOEA
  3. METHYLPREDNISOLONE ACETATE [Suspect]
     Indication: MORPHOEA
     Route: 042
  4. HEPARIN (HEPARIN) [Suspect]
     Indication: THROMBOSIS
  5. ASPIRIN (ACETYLSALICYLIC ACID) [Suspect]
     Indication: THROMBOSIS
     Route: 048
  6. WARFARIN (WARFARIN) [Suspect]
     Indication: THROMBOSIS
     Route: 048

REACTIONS (9)
  - General physical health deterioration [None]
  - Skin plaque [None]
  - Skin ulcer [None]
  - Alopecia [None]
  - Thrombosis [None]
  - Gangrene [None]
  - Toe amputation [None]
  - Sepsis [None]
  - Condition aggravated [None]
